FAERS Safety Report 17236762 (Version 3)
Quarter: 2020Q1

REPORT INFORMATION
  Report Type: Spontaneous
  Country: US (occurrence: US)
  Receive Date: 20200106
  Receipt Date: 20200212
  Transmission Date: 20200409
  Serious: Yes (Other)
  Sender: FDA-Public Use
  Company Number: US-PFIZER INC-2020002127

PATIENT
  Age: 65 Year
  Sex: Female
  Weight: 62.14 kg

DRUGS (4)
  1. PROGESTIN [Concomitant]
     Active Substance: PROGESTERONE
     Dosage: UNK
  2. PREMARIN [Suspect]
     Active Substance: ESTROGENS, CONJUGATED
     Indication: MENOPAUSE
     Dosage: 1.25 MG, 1X/DAY
     Route: 048
     Dates: start: 198305
  3. PREMARIN [Suspect]
     Active Substance: ESTROGENS, CONJUGATED
     Indication: POST PROCEDURAL COMPLICATION
     Dosage: 1.25 MG, 1X/DAY
     Dates: start: 198308
  4. PREMARIN [Suspect]
     Active Substance: ESTROGENS, CONJUGATED
     Indication: MENOPAUSAL SYMPTOMS
     Dosage: UNK
     Dates: start: 1986

REACTIONS (2)
  - Headache [Unknown]
  - Carpal tunnel syndrome [Unknown]
